FAERS Safety Report 10818395 (Version 1)
Quarter: 2015Q1

REPORT INFORMATION
  Report Type: Spontaneous
  Country: CH (occurrence: CH)
  Receive Date: 20150218
  Receipt Date: 20150218
  Transmission Date: 20150721
  Serious: Yes (Death, Other)
  Sender: FDA-Public Use
  Company Number: PHHY2015CH016961

PATIENT
  Age: 71 Year
  Sex: Male

DRUGS (2)
  1. PACLITAXEL. [Suspect]
     Active Substance: PACLITAXEL
     Indication: ADENOSQUAMOUS CELL LUNG CANCER
     Route: 065
  2. CARBOPLATIN. [Suspect]
     Active Substance: CARBOPLATIN
     Indication: ADENOSQUAMOUS CELL LUNG CANCER
     Route: 065

REACTIONS (5)
  - Tumour fistulisation [Unknown]
  - Adenosquamous cell lung cancer [Fatal]
  - Lung infiltration [Fatal]
  - Haemorrhage [Fatal]
  - Abscess [Unknown]
